FAERS Safety Report 6924201-3 (Version None)
Quarter: 2010Q3

REPORT INFORMATION
  Report Type: 
  Country: None (occurrence: None)
  Receive Date: 20100813
  Receipt Date: 20100804
  Transmission Date: 20110219
  Serious: Yes (Other)
  Sender: FDA-Public Use
  Company Number: US-ABBOTT-10P-163-0663052-00

PATIENT
  Sex: Male

DRUGS (2)
  1. HUMIRA [Suspect]
     Indication: PRODUCT USED FOR UNKNOWN INDICATION
     Dosage: STOPPED DUE TO FOOT INFECTION
  2. HUMIRA [Suspect]

REACTIONS (4)
  - EYE DISCHARGE [None]
  - LOCALISED INFECTION [None]
  - MIGRAINE [None]
  - UNEVALUABLE EVENT [None]
